FAERS Safety Report 12863443 (Version 1)
Quarter: 2016Q4

REPORT INFORMATION
  Report Type: Spontaneous
  Country: JP (occurrence: JP)
  Receive Date: 20161019
  Receipt Date: 20161019
  Transmission Date: 20170207
  Serious: Yes (Other)
  Sender: FDA-Public Use
  Company Number: JP-PFIZER INC-2016486021

PATIENT
  Age: 52 Year
  Sex: Male

DRUGS (5)
  1. LEVOTOMIN /00038602/ [Concomitant]
     Active Substance: LEVOMEPROMAZINE
     Dosage: 5 MG, 1X/DAY
     Route: 048
  2. DIAZEPAM. [Concomitant]
     Active Substance: DIAZEPAM
     Dosage: 2 MG, 3X/DAY
     Route: 048
  3. FLUNITRAZEPAM [Concomitant]
     Active Substance: FLUNITRAZEPAM
     Dosage: 1 MG, 1X/DAY
     Route: 048
  4. LYRICA [Suspect]
     Active Substance: PREGABALIN
     Dosage: 75 MG, 2X/DAY
     Route: 048
     Dates: start: 20160926, end: 20161012
  5. ATORVASTATIN [Concomitant]
     Active Substance: ATORVASTATIN
     Dosage: 10 MG, 1X/DAY
     Route: 048

REACTIONS (2)
  - Hepatic function abnormal [Unknown]
  - Rash [Unknown]

NARRATIVE: CASE EVENT DATE: 20161011
